FAERS Safety Report 8244198-6 (Version None)
Quarter: 2012Q1

REPORT INFORMATION
  Report Type: 
  Country: None (occurrence: None)
  Receive Date: 20120329
  Receipt Date: 20120319
  Transmission Date: 20120608
  Serious: Yes (Disabling)
  Sender: FDA-Public Use
  Company Number: US-MERCK-1203USA03485

PATIENT
  Sex: Female

DRUGS (2)
  1. FOSAMAX [Suspect]
     Indication: OSTEOPENIA
     Route: 048
     Dates: start: 20000101, end: 20100101
  2. FOSAMAX [Suspect]
     Indication: OSTEOPOROSIS
     Route: 048
     Dates: start: 20000101, end: 20100101

REACTIONS (5)
  - STRESS FRACTURE [None]
  - HIP FRACTURE [None]
  - BONE DENSITY DECREASED [None]
  - OSTEOPOROSIS [None]
  - FEMUR FRACTURE [None]
